FAERS Safety Report 9988181 (Version 1)
Quarter: 2014Q1

REPORT INFORMATION
  Report Type: Spontaneous
  Country: US (occurrence: US)
  Receive Date: 20140309
  Receipt Date: 20140309
  Transmission Date: 20141002
  Serious: No
  Sender: FDA-Public Use
  Company Number: US-009507513-1403USA003079

PATIENT
  Age: 26 Year
  Sex: Female
  Weight: 82.99 kg

DRUGS (5)
  1. NEXPLANON [Suspect]
     Dosage: 1 ROD FOR 3 YEARS
     Route: 059
     Dates: start: 20131223
  2. LYRICA [Concomitant]
  3. METHADONE HYDROCHLORIDE [Concomitant]
  4. VALIUM [Concomitant]
  5. VICODIN [Concomitant]

REACTIONS (3)
  - Menstrual disorder [Unknown]
  - Menstruation delayed [Unknown]
  - Oligomenorrhoea [Not Recovered/Not Resolved]
